FAERS Safety Report 9027729 (Version 2)
Quarter: 2013Q1

REPORT INFORMATION
  Report Type: Spontaneous
  Country: FR (occurrence: FR)
  Receive Date: 20130123
  Receipt Date: 20130313
  Transmission Date: 20140127
  Serious: Yes (Death)
  Sender: FDA-Public Use
  Company Number: FR-BRISTOL-MYERS SQUIBB COMPANY-17296278

PATIENT
  Age: 41 Year
  Sex: Female
  Weight: 67.4 kg

DRUGS (1)
  1. NULOJIX [Suspect]
     Indication: RENAL TRANSPLANT
     Dosage: INF
     Route: 042
     Dates: start: 20120911

REACTIONS (1)
  - Death [Fatal]
